FAERS Safety Report 6219959-5 (Version None)
Quarter: 2009Q2

REPORT INFORMATION
  Report Type: 
  Country: None (occurrence: None)
  Receive Date: 20090609
  Receipt Date: 20090312
  Transmission Date: 20091009
  Serious: No
  Sender: FDA-Public Use
  Company Number: US-BAYER-200917260NA

PATIENT
  Age: 49 Year
  Sex: Female
  Weight: 74 kg

DRUGS (3)
  1. ULTRAVIST 370 [Suspect]
     Indication: COMPUTERISED TOMOGRAM ABDOMEN
     Dosage: TOTAL DAILY DOSE: 80 ML  UNIT DOSE: 500 ML
     Route: 042
     Dates: start: 20090312, end: 20090312
  2. HYPERTENSION MEDICATION [Concomitant]
  3. UNSPECIFIED CONTRAST [Concomitant]
     Route: 048
     Dates: start: 20090312

REACTIONS (2)
  - PRURITUS [None]
  - URTICARIA [None]
